FAERS Safety Report 4651596-6 (Version None)
Quarter: 2005Q2

REPORT INFORMATION
  Report Type: 
  Country: None (occurrence: None)
  Receive Date: 20050502
  Receipt Date: 20050420
  Transmission Date: 20051028
  Serious: Yes (Other)
  Sender: FDA-Public Use
  Company Number: S05-USA-02166-01

PATIENT
  Age: 71 Year
  Sex: Male

DRUGS (4)
  1. THYROID TAB [Suspect]
     Indication: HYPOTHYROIDISM
     Dosage: 150 MG QD PO
     Route: 048
     Dates: start: 20040501
  2. INSULIN PUMP [Concomitant]
  3. KLONOPIN [Concomitant]
  4. IRON (IRON) [Concomitant]

REACTIONS (6)
  - ALOPECIA [None]
  - BLOOD THYROID STIMULATING HORMONE DECREASED [None]
  - HEART RATE DECREASED [None]
  - NAIL DISORDER [None]
  - NASOPHARYNGITIS [None]
  - VENTRICULAR EXTRASYSTOLES [None]
